FAERS Safety Report 6181800-7 (Version None)
Quarter: 2009Q2

REPORT INFORMATION
  Report Type: 
  Country: None (occurrence: None)
  Receive Date: 20090506
  Receipt Date: 20090427
  Transmission Date: 20091009
  Serious: Yes (Other)
  Sender: FDA-Public Use
  Company Number: PHHY2009BR10410

PATIENT
  Age: 58 Year
  Sex: Female

DRUGS (6)
  1. EXFORGE [Suspect]
     Indication: HYPERTENSION
     Dosage: 320/5MG
     Route: 048
     Dates: start: 20080801, end: 20090313
  2. EXFORGE [Suspect]
     Dosage: 320/10MG
     Route: 048
     Dates: start: 20080314, end: 20090316
  3. DIOVAN [Suspect]
     Dosage: 320 MG
  4. HYGROTON [Concomitant]
     Dosage: 1 TABLET PER DAY
     Route: 048
  5. MUVINOR [Concomitant]
  6. ARADOIS [Concomitant]
     Dosage: 125/50 MG
     Dates: start: 20090401

REACTIONS (9)
  - BLINDNESS [None]
  - BLOOD PRESSURE INCREASED [None]
  - EYE DISCHARGE [None]
  - EYE SWELLING [None]
  - HEADACHE [None]
  - NECK PAIN [None]
  - OEDEMA PERIPHERAL [None]
  - SWELLING FACE [None]
  - VISION BLURRED [None]
